FAERS Safety Report 25171077 (Version 1)
Quarter: 2025Q2

REPORT INFORMATION
  Report Type: Spontaneous
  Country: JP (occurrence: JP)
  Receive Date: 20250408
  Receipt Date: 20250408
  Transmission Date: 20250716
  Serious: Yes (Death, Other)
  Sender: IDORSIA PHARMACEUTICALS
  Company Number: JP-IDORSIA-009916-2025-JP

PATIENT
  Age: 8 Decade
  Sex: Female

DRUGS (1)
  1. QUVIVIQ [Suspect]
     Active Substance: DARIDOREXANT
     Indication: Product used for unknown indication
     Route: 048

REACTIONS (1)
  - Amyotrophic lateral sclerosis [Fatal]
